FAERS Safety Report 19401636 (Version 1)
Quarter: 2021Q2

REPORT INFORMATION
  Report Type: Spontaneous
  Country: GH (occurrence: GH)
  Receive Date: 20210611
  Receipt Date: 20210611
  Transmission Date: 20210717
  Serious: Yes (Hospitalization, Other)
  Sender: FDA-Public Use
  Company Number: GH-IPCA LABORATORIES LIMITED-IPC-2021-GH-001105

PATIENT

DRUGS (2)
  1. WARFARIN [Suspect]
     Active Substance: WARFARIN
     Dosage: 7.5 MILLIGRAM, QD
     Route: 065
  2. WARFARIN [Suspect]
     Active Substance: WARFARIN
     Indication: PULMONARY EMBOLISM
     Dosage: 5 MILLIGRAM
     Route: 065

REACTIONS (16)
  - Acute kidney injury [Recovered/Resolved]
  - Crepitations [Recovered/Resolved]
  - Toxicity to various agents [Recovered/Resolved]
  - Therapy change [Unknown]
  - Skin necrosis [Recovered/Resolved]
  - Product dose omission issue [Unknown]
  - Right ventricular failure [Recovered/Resolved]
  - Dyspnoea [Recovered/Resolved]
  - Orthopnoea [Recovered/Resolved]
  - Kussmaul respiration [Recovered/Resolved]
  - Pulmonary hypertension [Recovered/Resolved]
  - Epistaxis [Recovered/Resolved]
  - Blister [Recovered/Resolved]
  - Breath sounds [Recovered/Resolved]
  - Swelling [Recovered/Resolved]
  - Bullous haemorrhagic dermatosis [Recovered/Resolved]
